FAERS Safety Report 24023521 (Version 1)
Quarter: 2024Q2

REPORT INFORMATION
  Report Type: Report from Study
  Country: CN (occurrence: CN)
  Receive Date: 20240627
  Receipt Date: 20240627
  Transmission Date: 20240716
  Serious: No
  Sender: FDA-Public Use
  Company Number: CN-ROCHE-3241186

PATIENT
  Age: 44 Year
  Sex: Female

DRUGS (1)
  1. ALECENSA [Suspect]
     Active Substance: ALECTINIB HYDROCHLORIDE
     Indication: Non-small cell lung cancer metastatic
     Dosage: 224CAPSULES PER BOX
     Route: 048
     Dates: start: 20220530

REACTIONS (5)
  - Weight increased [Not Recovered/Not Resolved]
  - Constipation [Recovered/Resolved]
  - Pruritus [Recovering/Resolving]
  - Herpes virus infection [Recovering/Resolving]
  - Decreased immune responsiveness [Unknown]

NARRATIVE: CASE EVENT DATE: 20230801
